FAERS Safety Report 8479141-8 (Version None)
Quarter: 2012Q2

REPORT INFORMATION
  Report Type: 
  Country: None (occurrence: None)
  Receive Date: 20120402
  Receipt Date: 20110617
  Transmission Date: 20120825
  Serious: Yes (Hospitalization)
  Sender: FDA-Public Use
  Company Number: 2011ST000142

PATIENT
  Age: 9 Year
  Sex: Female
  Weight: 25 kg

DRUGS (1)
  1. ONCASPAR [Suspect]
     Indication: ACUTE LYMPHOCYTIC LEUKAEMIA
     Dosage: 2350 IU;X1;IM
     Route: 030
     Dates: start: 20110614, end: 20110614

REACTIONS (4)
  - LIP SWELLING [None]
  - HYPERSENSITIVITY [None]
  - URTICARIA [None]
  - RASH [None]
